FAERS Safety Report 12314568 (Version 3)
Quarter: 2016Q3

REPORT INFORMATION
  Report Type: Report from Study
  Country: US (occurrence: US)
  Receive Date: 20160428
  Receipt Date: 20160819
  Transmission Date: 20161109
  Serious: Yes (Hospitalization)
  Sender: FDA-Public Use
  Company Number: US-B.I. PHARMACEUTICALS,INC./RIDGEFIELD-2016-BI-26510BP

PATIENT
  Sex: Female

DRUGS (2)
  1. OFEV [Suspect]
     Active Substance: NINTEDANIB
     Indication: IDIOPATHIC PULMONARY FIBROSIS
     Dosage: 300 MG
     Route: 048
     Dates: start: 20160226
  2. OFEV [Suspect]
     Active Substance: NINTEDANIB
     Dosage: 300 MG
     Route: 048
     Dates: start: 20160302

REACTIONS (9)
  - Dyspnoea [Unknown]
  - Dyspnoea exertional [Unknown]
  - Productive cough [Unknown]
  - Respiratory tract congestion [Unknown]
  - Urinary tract infection [Unknown]
  - Cough [Unknown]
  - Secretion discharge [Unknown]
  - Abdominal discomfort [Not Recovered/Not Resolved]
  - Pneumonia [Unknown]
